FAERS Safety Report 7980990-0 (Version None)
Quarter: 2011Q4

REPORT INFORMATION
  Report Type: 
  Country: None (occurrence: None)
  Receive Date: 20111215
  Receipt Date: 20111212
  Transmission Date: 20120403
  Serious: No
  Sender: FDA-Public Use
  Company Number: US-BIOGENIDEC-2011BI035776

PATIENT
  Age: 54 Year
  Sex: Female

DRUGS (1)
  1. TYSABRI [Suspect]
     Indication: MULTIPLE SCLEROSIS
     Route: 042
     Dates: start: 20101004

REACTIONS (12)
  - DRUG LEVEL INCREASED [None]
  - FATIGUE [None]
  - TOOTH FRACTURE [None]
  - BONE DENSITY DECREASED [None]
  - DRY MOUTH [None]
  - SWELLING FACE [None]
  - GINGIVAL SWELLING [None]
  - SIALOADENITIS [None]
  - GINGIVAL PAIN [None]
  - DIZZINESS [None]
  - BONE DISORDER [None]
  - TOOTHACHE [None]
